FAERS Safety Report 4847107-2 (Version None)
Quarter: 2005Q4

REPORT INFORMATION
  Report Type: 
  Country: None (occurrence: None)
  Receive Date: 20051205
  Receipt Date: 20051128
  Transmission Date: 20060501
  Serious: Yes (Death, Hospitalization)
  Sender: FDA-Public Use
  Company Number: 200511912BWH

PATIENT
  Sex: Female

DRUGS (2)
  1. TRASYLOL [Suspect]
     Indication: AORTIC RUPTURE
     Dosage: INTRAVENOUS
     Route: 042
     Dates: start: 20050901
  2. TRASYLOL [Suspect]
     Indication: CORONARY ARTERY SURGERY
     Dosage: INTRAVENOUS
     Route: 042
     Dates: start: 20050901

REACTIONS (1)
  - INTRACARDIAC THROMBUS [None]
